FAERS Safety Report 6969169-9 (Version None)
Quarter: 2010Q3

REPORT INFORMATION
  Report Type: 
  Country: None (occurrence: None)
  Receive Date: 20100907
  Receipt Date: 20100824
  Transmission Date: 20110219
  Serious: Yes (Other)
  Sender: FDA-Public Use
  Company Number: PHHY2010BR56737

PATIENT
  Sex: Female

DRUGS (10)
  1. RASILEZ HCT [Suspect]
     Indication: HYPERTENSION
     Dosage: 1 TABLET DAILY
     Route: 048
     Dates: start: 20100602
  2. ATENOLOL [Concomitant]
     Indication: CORONARY REVASCULARISATION
     Dosage: 1 TABLET DAILY
     Route: 048
  3. BUFFERIN CARDIO [Concomitant]
     Indication: CORONARY REVASCULARISATION
     Dosage: 1 TABLET DAILY
     Route: 048
  4. ZYLORIC [Concomitant]
     Indication: BLOOD URIC ACID
     Dosage: 1 TABLET DAILY
     Route: 048
  5. SIMVASTATIN [Concomitant]
     Indication: BLOOD CHOLESTEROL INCREASED
     Dosage: 1 TABLET DAILY
     Route: 048
  6. PANTOPRAZOLE [Concomitant]
     Indication: GASTRIC DISORDER
     Dosage: 1 TABLET DAILY
     Route: 048
  7. MOTILIUM [Concomitant]
     Indication: GASTRIC DISORDER
     Dosage: 1 TABLET DAILY
     Route: 048
  8. LEXOTAN [Concomitant]
     Dosage: 1 TABLET DAILY
     Route: 048
  9. MONOCORDIL [Concomitant]
     Indication: CORONARY REVASCULARISATION
     Dosage: 1 TABLET DAILY
     Route: 047
  10. ALDACTONE [Concomitant]
     Indication: CORONARY REVASCULARISATION
     Dosage: 1 TABLET DAILY
     Route: 048

REACTIONS (1)
  - BLOOD PRESSURE INCREASED [None]
